FAERS Safety Report 6450828-1 (Version None)
Quarter: 2009Q4

REPORT INFORMATION
  Report Type: 
  Country: None (occurrence: None)
  Receive Date: 20091118
  Receipt Date: 20090602
  Transmission Date: 20100525
  Serious: Yes (Hospitalization)
  Sender: FDA-Public Use
  Company Number: 2009BI010845

PATIENT
  Age: 45 Year
  Sex: Female

DRUGS (5)
  1. TYSABRI [Suspect]
     Indication: MULTIPLE SCLEROSIS
     Dosage: 300 MG;QM;IV
     Route: 042
     Dates: start: 20080829, end: 20090306
  2. ATENOLOL [Concomitant]
  3. MAXZIDE [Concomitant]
  4. VYTORIN [Concomitant]
  5. AVONEX [Concomitant]

REACTIONS (1)
  - PNEUMONIA [None]
